FAERS Safety Report 6886113-3 (Version None)
Quarter: 2010Q3

REPORT INFORMATION
  Report Type: 
  Country: None (occurrence: None)
  Receive Date: 20100729
  Receipt Date: 20080328
  Transmission Date: 20110219
  Serious: No
  Sender: FDA-Public Use
  Company Number: US-PFIZER INC-2008015917

PATIENT
  Sex: Female
  Weight: 52.7 kg

DRUGS (3)
  1. CELEBREX [Suspect]
     Indication: ARTHRALGIA
     Route: 048
  2. CELEBREX [Suspect]
     Indication: OSTEOARTHRITIS
  3. VERAPAMIL [Concomitant]
     Indication: HYPERTENSION

REACTIONS (2)
  - DRUG INEFFECTIVE [None]
  - PRODUCT QUALITY ISSUE [None]
